FAERS Safety Report 8300213-2 (Version None)
Quarter: 2012Q2

REPORT INFORMATION
  Report Type: 
  Country: None (occurrence: None)
  Receive Date: 20120420
  Receipt Date: 20120412
  Transmission Date: 20120825
  Serious: Yes (Other)
  Sender: FDA-Public Use
  Company Number: US-PFIZER INC-2012096316

PATIENT
  Sex: Female
  Weight: 55.329 kg

DRUGS (4)
  1. LYRICA [Suspect]
     Indication: NEURALGIA
     Dosage: 25 MG, 3X/DAY DURING THE DAYTIME AND 75MG ORAL CAPSULE AT NIGHT
     Route: 048
  2. LYRICA [Suspect]
     Indication: FIBROMYALGIA
     Dosage: 75 MG, 3X/DAY
  3. XANAX [Concomitant]
     Indication: INSOMNIA
     Dosage: UNK
  4. LORTAB [Concomitant]
     Indication: PAIN
     Dosage: UNK

REACTIONS (5)
  - SENSITIVITY OF TEETH [None]
  - DRUG INEFFECTIVE [None]
  - TOOTH LOSS [None]
  - WEIGHT DECREASED [None]
  - AGEUSIA [None]
